FAERS Safety Report 22336941 (Version 1)
Quarter: 2023Q2

REPORT INFORMATION
  Report Type: Spontaneous
  Country: US (occurrence: US)
  Receive Date: 20230518
  Receipt Date: 20230518
  Transmission Date: 20230722
  Serious: Yes (Other)
  Sender: FDA-Public Use
  Company Number: US-JNJFOC-20230527059

PATIENT
  Sex: Female

DRUGS (2)
  1. TECLISTAMAB [Suspect]
     Active Substance: TECLISTAMAB
     Indication: Plasma cell myeloma refractory
     Dosage: TREATMENT WAS NOT PART OF CAR-T THERAPY?1ST WEEKLY DOSE
     Route: 058
  2. TECLISTAMAB [Suspect]
     Active Substance: TECLISTAMAB
     Dosage: STEP-UP DOSING
     Route: 058

REACTIONS (3)
  - Neutropenia [Unknown]
  - Rash [Recovering/Resolving]
  - Anaemia [Unknown]
